FAERS Safety Report 20734717 (Version 1)
Quarter: 2022Q2

REPORT INFORMATION
  Report Type: Spontaneous
  Country: KR (occurrence: KR)
  Receive Date: 20220421
  Receipt Date: 20220421
  Transmission Date: 20220721
  Serious: Yes (Other)
  Sender: FDA-Public Use
  Company Number: KR-ELI_LILLY_AND_COMPANY-KR202204006540

PATIENT
  Age: 53 Year
  Sex: Female

DRUGS (8)
  1. VERZENIO [Suspect]
     Active Substance: ABEMACICLIB
     Indication: Invasive ductal breast carcinoma
     Dosage: UNK, UNKNOWN
     Route: 048
     Dates: start: 202104
  2. VERZENIO [Suspect]
     Active Substance: ABEMACICLIB
     Indication: Metastases to lymph nodes
  3. VERZENIO [Suspect]
     Active Substance: ABEMACICLIB
     Indication: Metastases to bone
  4. VERZENIO [Suspect]
     Active Substance: ABEMACICLIB
     Indication: Metastases to ovary
  5. FEMARA [Concomitant]
     Active Substance: LETROZOLE
     Indication: Invasive ductal breast carcinoma
     Dosage: UNK, UNKNOWN
     Route: 065
     Dates: start: 202104
  6. FEMARA [Concomitant]
     Active Substance: LETROZOLE
     Indication: Metastases to lymph nodes
  7. FEMARA [Concomitant]
     Active Substance: LETROZOLE
     Indication: Metastases to bone
  8. FEMARA [Concomitant]
     Active Substance: LETROZOLE
     Indication: Metastases to ovary

REACTIONS (3)
  - Malignant neoplasm progression [Unknown]
  - Breast induration [Unknown]
  - BRCA2 gene mutation [Unknown]

NARRATIVE: CASE EVENT DATE: 20220201
